FAERS Safety Report 6783503-4 (Version None)
Quarter: 2010Q2

REPORT INFORMATION
  Report Type: 
  Country: None (occurrence: None)
  Receive Date: 20100622
  Receipt Date: 20100609
  Transmission Date: 20101027
  Serious: Yes (Other)
  Sender: FDA-Public Use
  Company Number: PHFR2010GB00605

PATIENT
  Sex: Female
  Weight: 55.2 kg

DRUGS (3)
  1. METOPROLOL TARTRATE [Suspect]
     Indication: MYOCARDIAL ISCHAEMIA
     Dosage: 50MG/DAY
     Route: 048
     Dates: start: 20061026
  2. ASPIRIN [Concomitant]
     Indication: MYOCARDIAL ISCHAEMIA
     Dosage: 5-10MG/DAY
     Route: 048
  3. LISINOPRIL [Concomitant]
     Indication: MYOCARDIAL ISCHAEMIA
     Dosage: 2.5MG - 5MG
     Route: 048
     Dates: start: 20070504, end: 20080401

REACTIONS (3)
  - GINGIVAL PAIN [None]
  - HAEMORRHAGE [None]
  - PEMPHIGOID [None]
